FAERS Safety Report 14194113 (Version 1)
Quarter: 2017Q4

REPORT INFORMATION
  Report Type: Spontaneous
  Country: FR (occurrence: FR)
  Receive Date: 20171116
  Receipt Date: 20171116
  Transmission Date: 20180321
  Serious: Yes (Other)
  Sender: FDA-Public Use
  Company Number: FR-MERCK KGAA-2034243

PATIENT
  Age: 44 Year
  Sex: Female

DRUGS (3)
  1. NOVOTHYROX [Suspect]
     Active Substance: LEVOTHYROXINE SODIUM
     Dates: start: 201612, end: 20170818
  2. NOVOTHYROX [Suspect]
     Active Substance: LEVOTHYROXINE SODIUM
     Indication: PRODUCT USED FOR UNKNOWN INDICATION
     Dates: start: 2015, end: 201612
  3. NOVOTHYROX [Suspect]
     Active Substance: LEVOTHYROXINE SODIUM
     Dates: start: 20170818

REACTIONS (6)
  - Pulmonary embolism [None]
  - Blood thyroid stimulating hormone increased [None]
  - Insomnia [None]
  - Diarrhoea [None]
  - Weight increased [None]
  - Dry mouth [None]

NARRATIVE: CASE EVENT DATE: 2015
